FAERS Safety Report 11055228 (Version 1)
Quarter: 2015Q2

REPORT INFORMATION
  Report Type: Spontaneous
  Country: US (occurrence: US)
  Receive Date: 20150422
  Receipt Date: 20150422
  Transmission Date: 20150821
  Serious: Yes (Hospitalization)
  Sender: FDA-Public Use
  Company Number: US-SA-2015SA042334

PATIENT
  Age: 69 Year
  Sex: Female

DRUGS (9)
  1. DILANTIN [Concomitant]
     Active Substance: PHENYTOIN
     Dates: start: 1993
  2. TOCILIZUMAB [Concomitant]
     Active Substance: TOCILIZUMAB
     Indication: RHEUMATOID ARTHRITIS
     Dosage: 1 IN 4 WEEK
     Route: 042
     Dates: start: 20080722, end: 20091013
  3. EXFORGE [Concomitant]
     Active Substance: AMLODIPINE BESYLATE\VALSARTAN
     Dates: start: 20080913
  4. IMIPRAMINE HYDROCHLORIDE. [Concomitant]
     Active Substance: IMIPRAMINE HYDROCHLORIDE
     Dates: start: 1995
  5. LOVENOX [Suspect]
     Active Substance: ENOXAPARIN SODIUM
     Route: 065
  6. FOLIC ACID. [Concomitant]
     Active Substance: FOLIC ACID
     Dates: start: 2007
  7. SYNTHROID [Concomitant]
     Active Substance: LEVOTHYROXINE SODIUM
     Dates: start: 1988
  8. FOSAMAX [Concomitant]
     Active Substance: ALENDRONATE SODIUM
     Dates: start: 2000
  9. METHOTREXATE [Concomitant]
     Active Substance: METHOTREXATE
     Dates: start: 2002

REACTIONS (1)
  - Drug hypersensitivity [Recovered/Resolved]

NARRATIVE: CASE EVENT DATE: 20091103
